FAERS Safety Report 18778097 (Version 1)
Quarter: 2021Q1

REPORT INFORMATION
  Report Type: Spontaneous
  Country: US (occurrence: US)
  Receive Date: 20210123
  Receipt Date: 20210123
  Transmission Date: 20210419
  Serious: Yes (Hospitalization, Other)
  Sender: FDA-Public Use
  Company Number: US-LEADINGPHARMA-US-2021LEALIT00013

PATIENT
  Age: 88 Year
  Sex: Female

DRUGS (3)
  1. THIAMINE. [Interacting]
     Active Substance: THIAMINE
     Indication: VITAMIN B COMPLEX DEFICIENCY
     Route: 042
  2. FUROSEMIDE. [Suspect]
     Active Substance: FUROSEMIDE
     Indication: CARDIAC FAILURE
     Route: 065
  3. BICARBONATE [Interacting]
     Active Substance: SODIUM BICARBONATE
     Indication: LACTIC ACIDOSIS
     Route: 042

REACTIONS (3)
  - Lactic acidosis [Recovered/Resolved]
  - Vitamin B1 deficiency [Recovered/Resolved]
  - Dyspnoea [Recovered/Resolved]
